FAERS Safety Report 4459297-4 (Version None)
Quarter: 2004Q3

REPORT INFORMATION
  Report Type: 
  Country: None (occurrence: None)
  Receive Date: 20040922
  Receipt Date: 20040922
  Transmission Date: 20050211
  Serious: No
  Sender: FDA-Public Use
  Company Number: None

PATIENT
  Age: 61 Year
  Sex: Female
  Weight: 71 kg

DRUGS (8)
  1. ABILIFY [Suspect]
     Indication: BIPOLAR DISORDER
     Dosage: 15 QHS ORAL
     Route: 048
     Dates: start: 20040607, end: 20040610
  2. EFFEXOR [Concomitant]
  3. KLONOPIN [Concomitant]
  4. ATIVAN [Concomitant]
  5. LEVOTHYROXINE SODIUM [Concomitant]
  6. LIPITOR [Concomitant]
  7. LASIX [Concomitant]
  8. LOTREL [Concomitant]

REACTIONS (1)
  - EXTRAPYRAMIDAL DISORDER [None]
